FAERS Safety Report 8805029 (Version 1)
Quarter: 2012Q4

REPORT INFORMATION
  Report Type: 
  Country: IT (occurrence: IT)
  Receive Date: 20120924
  Receipt Date: 20120924
  Transmission Date: 20130627
  Serious: Yes (Life-Threatening)
  Sender: FDA-Public Use
  Company Number: IT-ROCHE-1114837

PATIENT
  Age: 82 Year
  Sex: Female

DRUGS (5)
  1. MABTHERA [Suspect]
     Indication: NON-HODGKIN^S LYMPHOMA
     Route: 042
     Dates: start: 20110713, end: 20110914
  2. MABTHERA [Suspect]
     Route: 042
     Dates: start: 20110713, end: 20110914
  3. CYCLOPHOSPHAMIDE [Concomitant]
     Indication: NON-HODGKIN^S LYMPHOMA
     Route: 042
     Dates: start: 20110802, end: 20110914
  4. MYOCET [Concomitant]
     Indication: NON-HODGKIN^S LYMPHOMA
     Route: 042
     Dates: start: 20110802, end: 20110914
  5. VINCRISTINA [Concomitant]
     Indication: NON-HODGKIN^S LYMPHOMA
     Route: 040
     Dates: start: 20110702, end: 20110814

REACTIONS (2)
  - Progressive multifocal leukoencephalopathy [Not Recovered/Not Resolved]
  - Quadriparesis [Not Recovered/Not Resolved]
